FAERS Safety Report 12693598 (Version 1)
Quarter: 2016Q3

REPORT INFORMATION
  Report Type: Spontaneous
  Country: AT (occurrence: AT)
  Receive Date: 20160829
  Receipt Date: 20160829
  Transmission Date: 20161109
  Serious: Yes (Other)
  Sender: FDA-Public Use
  Company Number: AT-ASTELLAS-2016US032801

PATIENT
  Age: 22 Year
  Sex: Male

DRUGS (4)
  1. EPOCH                              /08193401/ [Concomitant]
     Indication: IMMUNOCHEMOTHERAPY
     Dosage: 1 M2, UNKNOWN FREQUENCY
     Route: 065
  2. TACROLIMUS. [Suspect]
     Active Substance: TACROLIMUS
     Indication: HEART TRANSPLANT
     Route: 065
  3. RITUXIMAB [Concomitant]
     Active Substance: RITUXIMAB
     Indication: HEART TRANSPLANT
     Dosage: TOTAL OF 4 DOSES, WEEKLY
     Route: 065
  4. MYCOPHENOLIC ACID. [Suspect]
     Active Substance: MYCOPHENOLIC ACID
     Indication: HEART TRANSPLANT
     Route: 065

REACTIONS (5)
  - Abdominal adhesions [Unknown]
  - Cytomegalovirus infection [Unknown]
  - Diffuse large B-cell lymphoma [Recovered/Resolved]
  - Mechanical ileus [Unknown]
  - Febrile neutropenia [Unknown]

NARRATIVE: CASE EVENT DATE: 2007
